FAERS Safety Report 15222139 (Version 1)
Quarter: 2018Q3

REPORT INFORMATION
  Report Type: Spontaneous
  Country: US (occurrence: US)
  Receive Date: 20180731
  Receipt Date: 20180731
  Transmission Date: 20181010
  Serious: Yes (Other)
  Sender: FDA-Public Use
  Company Number: US-PFIZER INC-2016425482

PATIENT
  Age: 12 Year
  Sex: Male
  Weight: 27 kg

DRUGS (11)
  1. BENEFIX [Suspect]
     Active Substance: COAGULATION FACTOR IX RECOMBINANT HUMAN\ISOPROPYL ALCOHOL
     Dosage: 2400 IU, AS NEEDED (DAILY AS NEEDED FOR MAJOR BLEEDS (+/? 10%))
     Dates: start: 20160909, end: 20160909
  2. BENEFIX [Suspect]
     Active Substance: COAGULATION FACTOR IX RECOMBINANT HUMAN\ISOPROPYL ALCOHOL
     Indication: FACTOR IX DEFICIENCY
     Dosage: 1200 IU, AS NEEDED (DAILY AS NEEDED FOR MINOR BLEEDS CAN ADJUST DOSE +/? 10%)
     Dates: start: 20160907
  3. BENEFIX [Suspect]
     Active Substance: COAGULATION FACTOR IX RECOMBINANT HUMAN\ISOPROPYL ALCOHOL
     Dosage: 1250 IU, AS NEEDED (FOR MINOR BLEEDS)
     Route: 042
     Dates: start: 20160914, end: 20160914
  4. BENEFIX [Suspect]
     Active Substance: COAGULATION FACTOR IX RECOMBINANT HUMAN\ISOPROPYL ALCOHOL
     Dosage: 250 IU, SINGLE
     Route: 042
     Dates: start: 20160909, end: 20160909
  5. BENEFIX [Suspect]
     Active Substance: COAGULATION FACTOR IX RECOMBINANT HUMAN\ISOPROPYL ALCOHOL
     Dosage: 1200 IU, AS NEEDED (DAILY AS NEEDED FOR MINOR BLEEDS, CAN ADJUST DOSE +/? 10%)
     Dates: start: 20161128
  6. BENEFIX [Suspect]
     Active Substance: COAGULATION FACTOR IX RECOMBINANT HUMAN\ISOPROPYL ALCOHOL
     Dosage: 2500 IU, AS NEEDED (FOR MAJOR BLEEDS)
     Route: 042
     Dates: start: 20160914, end: 20160914
  7. BENEFIX [Suspect]
     Active Substance: COAGULATION FACTOR IX RECOMBINANT HUMAN\ISOPROPYL ALCOHOL
     Dosage: 2400 IU, AS NEEDED (DAILY AS NEEDED FOR MAJOR BLEEDS, CAN ADJUST DOSE +/? 10%)
     Dates: start: 20160907
  8. BENEFIX [Suspect]
     Active Substance: COAGULATION FACTOR IX RECOMBINANT HUMAN\ISOPROPYL ALCOHOL
     Dosage: 2400 IU, AS NEEDED (DAILY AS NEEDED FOR MAJOR BLEEDS, CAN ADJUST DOSE +/? 10%)
     Dates: start: 20161128
  9. BENEFIX [Suspect]
     Active Substance: COAGULATION FACTOR IX RECOMBINANT HUMAN\ISOPROPYL ALCOHOL
     Dosage: 1200 IU, AS NEEDED (DAILY AS NEEDED FOR MINOR BLEEDS, CAN ADJUST DOSE +/? 10%)
     Dates: start: 20171004
  10. BENEFIX [Suspect]
     Active Substance: COAGULATION FACTOR IX RECOMBINANT HUMAN\ISOPROPYL ALCOHOL
     Dosage: 2400 IU, AS NEEDED (AS NEEDED FOR MAJOR BLEEDS, CAN ADJUST DOSE +/? 10%)
     Dates: start: 20171004
  11. BENEFIX [Suspect]
     Active Substance: COAGULATION FACTOR IX RECOMBINANT HUMAN\ISOPROPYL ALCOHOL
     Dosage: 1200 IU, AS NEEDED (DAILY AS NEEDED FOR MINOR BLEEDS(+/? 10%))
     Dates: start: 20160909, end: 20160909

REACTIONS (2)
  - Laceration [Unknown]
  - Haemorrhage [Unknown]
